FAERS Safety Report 8089795-6 (Version None)
Quarter: 2012Q1

REPORT INFORMATION
  Report Type: 
  Country: None (occurrence: None)
  Receive Date: 20120128
  Receipt Date: 20110713
  Transmission Date: 20120608
  Serious: No
  Sender: FDA-Public Use
  Company Number: US-ABBOTT-11P-163-0838679-00

PATIENT
  Age: 57 Year
  Sex: Female

DRUGS (7)
  1. BENICAR [Concomitant]
     Indication: HYPERTENSION
  2. PREDNISONE TAB [Concomitant]
     Indication: RHEUMATOID ARTHRITIS
  3. ARAVA [Concomitant]
     Indication: RHEUMATOID ARTHRITIS
  4. EVISTA [Concomitant]
     Indication: OSTEOPENIA
  5. ATENOLOL [Concomitant]
     Indication: HYPERTENSION
  6. HUMIRA [Suspect]
     Indication: RHEUMATOID ARTHRITIS
     Dates: start: 20110411
  7. EVISTA [Concomitant]
     Indication: OSTEOPOROSIS

REACTIONS (5)
  - BRONCHITIS [None]
  - COUGH [None]
  - SINUS CONGESTION [None]
  - EAR DISCOMFORT [None]
  - RHINORRHOEA [None]
